FAERS Safety Report 14506127 (Version 1)
Quarter: 2018Q1

REPORT INFORMATION
  Report Type: Spontaneous
  Country: US (occurrence: US)
  Receive Date: 20180208
  Receipt Date: 20180208
  Transmission Date: 20180509
  Serious: Yes (Other)
  Sender: FDA-Public Use
  Company Number: US-PFIZER INC-2018054659

PATIENT
  Age: 77 Year
  Sex: Female
  Weight: 56.7 kg

DRUGS (16)
  1. XELJANZ XR [Suspect]
     Active Substance: TOFACITINIB CITRATE
     Indication: RHEUMATOID ARTHRITIS
     Dosage: 11 MG, 1X/DAY (1MG TABLET BY MOUTH ONCE A DAY)
     Route: 048
     Dates: start: 2016
  2. LISINOPRIL. [Concomitant]
     Active Substance: LISINOPRIL
     Indication: HYPERTENSION
     Dosage: 20 MG, 1X/DAY (20MG TABLET BY MOUTH ONCE A DAY)
     Route: 048
     Dates: start: 2017
  3. ARIPIPRAZOLE. [Concomitant]
     Active Substance: ARIPIPRAZOLE
     Indication: DEPRESSION
     Dosage: 2 MG, 1X/DAY(2MG A TABLET BY MOUTH ONCE A DAY. SHE CUTS THE PILL IN HALF FOR A 1 MG)
     Route: 048
  4. PREDNISONE. [Concomitant]
     Active Substance: PREDNISONE
     Indication: INFLAMMATION
  5. PRESERVISION [Concomitant]
     Active Substance: MINERALS\VITAMINS
     Indication: MACULAR DEGENERATION
     Dosage: UNK
  6. GABAPENTIN. [Concomitant]
     Active Substance: GABAPENTIN
     Indication: PARAESTHESIA
  7. GABAPENTIN. [Concomitant]
     Active Substance: GABAPENTIN
     Indication: NEUROPATHY PERIPHERAL
  8. AMLODIPINE [Concomitant]
     Active Substance: AMLODIPINE BESYLATE
     Indication: HYPERTENSION
     Dosage: 25 MG, 1X/DAY (25MG TABLET BY MOUTH ONE TIME A DAY)
     Route: 048
     Dates: start: 2018
  9. GABAPENTIN. [Concomitant]
     Active Substance: GABAPENTIN
     Indication: HYPOAESTHESIA
     Dosage: 300 MG, DAILY (100MG TABLETS, SHE TAKES 3 TABLETS EVERY NIGHT)
  10. VITAMIN D3 [Concomitant]
     Active Substance: CHOLECALCIFEROL
     Indication: SKIN DISORDER
     Dosage: 3000 MG, 1X/DAY (3000MG CAPSULE BY MOUTH ONCE A DAY)
     Route: 048
     Dates: start: 2017
  11. ASPIRIN. [Suspect]
     Active Substance: ASPIRIN
     Dosage: 81 MG, 1X/DAY (81MG TABLET BY MOUTH ONCE A DAY)
     Route: 048
     Dates: end: 2017
  12. PREDNISONE. [Concomitant]
     Active Substance: PREDNISONE
     Indication: RHEUMATOID ARTHRITIS
     Dosage: 2 MG, 1X/DAY (2MG TABLET BY MOUTH 1X/DAY FOR ONE DAY, THEN 1MG TABLET BY MOUTH 1X/DAY THE NEXT DAY
     Route: 048
  13. GENISTEIN [Concomitant]
     Active Substance: GENISTEIN
     Indication: ARTHRITIS
     Dosage: 1000 MG, 1X/DAY (1000MG BY MOUTH ONCE A DAY)
     Route: 048
  14. CALCIUM [Concomitant]
     Active Substance: CALCIUM
     Indication: SUPPLEMENTATION THERAPY
     Dosage: 1 DF, 1X/DAY (1 PILL BY MOUTH ONCE A DAY)
     Route: 048
  15. FISH OIL [Concomitant]
     Active Substance: FISH OIL
     Indication: BONE DISORDER
     Dosage: 1200 MG, 1X/DAY (1200MG CAPSULE BY MOUTH ONCE A DAY)
     Route: 048
  16. FOLIC ACID. [Concomitant]
     Active Substance: FOLIC ACID
     Indication: MEMORY IMPAIRMENT
     Dosage: 400 MG, 1X/DAY (400MG TABLET BY MONTH ONCE A DAY)
     Route: 048
     Dates: start: 2004

REACTIONS (1)
  - Haematochezia [Recovered/Resolved]

NARRATIVE: CASE EVENT DATE: 2017
